FAERS Safety Report 15686315 (Version 1)
Quarter: 2018Q4

REPORT INFORMATION
  Report Type: Spontaneous
  Country: FR (occurrence: FR)
  Receive Date: 20181204
  Receipt Date: 20181204
  Transmission Date: 20190205
  Serious: Yes (Other)
  Sender: FDA-Public Use
  Company Number: FR-BAYER-2018-219062

PATIENT
  Age: 65 Year
  Sex: Male
  Weight: 84 kg

DRUGS (2)
  1. STIVARGA [Suspect]
     Active Substance: REGORAFENIB
  2. NEXAVAR [Suspect]
     Active Substance: SORAFENIB

REACTIONS (9)
  - Palmar-plantar erythrodysaesthesia syndrome [None]
  - Nodule [None]
  - Anxiety [None]
  - Headache [None]
  - Decreased appetite [None]
  - Diarrhoea [None]
  - Hypertension [None]
  - Disease progression [None]
  - Dry skin [None]
